FAERS Safety Report 9646039 (Version 1)
Quarter: 2013Q4

REPORT INFORMATION
  Report Type: Spontaneous
  Country: NL (occurrence: NL)
  Receive Date: 20131025
  Receipt Date: 20131025
  Transmission Date: 20140711
  Serious: Yes (Other)
  Sender: FDA-Public Use
  Company Number: NL-PFIZER INC-2013305608

PATIENT
  Sex: Female

DRUGS (1)
  1. SERTRALINE HCL [Suspect]
     Indication: MENTAL DISORDER
     Dosage: 100 MG, 1X/DAY
     Dates: start: 2006

REACTIONS (2)
  - Meconium in amniotic fluid [Unknown]
  - Breech presentation [Unknown]
